FAERS Safety Report 8778955 (Version 1)
Quarter: 2012Q4

REPORT INFORMATION
  Report Type: 
  Country: JP (occurrence: JP)
  Receive Date: 20120912
  Receipt Date: 20120912
  Transmission Date: 20130627
  Serious: No
  Sender: FDA-Public Use
  Company Number: JP-JNJFOC-20120900256

PATIENT

DRUGS (2)
  1. DUROTEP MT [Suspect]
     Indication: CANCER PAIN
     Route: 062
  2. DUROTEP MT [Suspect]
     Indication: CANCER PAIN
     Dosage: 25 ug/hr and 12.5 ug/hr
     Route: 062

REACTIONS (3)
  - Inadequate analgesia [Unknown]
  - Somnolence [Unknown]
  - Treatment noncompliance [Unknown]
